FAERS Safety Report 20858578 (Version 2)
Quarter: 2022Q2

REPORT INFORMATION
  Report Type: Report from Study
  Country: US (occurrence: US)
  Receive Date: 20220522
  Receipt Date: 20220525
  Transmission Date: 20220720
  Serious: Yes (Other)
  Sender: FDA-Public Use
  Company Number: US-NOVARTISPH-NVSC2022US116008

PATIENT
  Sex: Male

DRUGS (2)
  1. KESIMPTA [Suspect]
     Active Substance: OFATUMUMAB
     Indication: Multiple sclerosis
     Dosage: 20 MG, QMO (INJECT 1 PEN (20MG) MONTHLY STARTING AT WEEK 4 AS DIRECTED)
     Route: 058
  2. GABAPENTIN [Concomitant]
     Active Substance: GABAPENTIN
     Indication: Product used for unknown indication
     Dosage: UNK
     Route: 065

REACTIONS (5)
  - Respiratory tract infection [Unknown]
  - Pyrexia [Unknown]
  - Chills [Unknown]
  - Headache [Unknown]
  - Rash [Unknown]
